FAERS Safety Report 23315539 (Version 1)
Quarter: 2023Q4

REPORT INFORMATION
  Report Type: Spontaneous
  Country: US (occurrence: US)
  Receive Date: 20231219
  Receipt Date: 20231219
  Transmission Date: 20240110
  Serious: No
  Sender: FDA-Public Use
  Company Number: US-ORG100016242-2023000234

PATIENT
  Age: 50 Year
  Sex: Female

DRUGS (5)
  1. EXPAREL [Suspect]
     Active Substance: BUPIVACAINE
     Indication: Cholecystectomy
     Route: 050
     Dates: start: 20230718, end: 20230718
  2. MARCAINE [Suspect]
     Active Substance: BUPIVACAINE HYDROCHLORIDE
     Indication: Cholecystectomy
     Dosage: 0.5% MARCAINE
     Route: 050
     Dates: start: 20230718, end: 20230718
  3. UNSPECIFIED INGREDIENT [Concomitant]
     Active Substance: UNSPECIFIED INGREDIENT
     Indication: General anaesthesia
     Dosage: NO DOSAGE REGIMEN PROVIDED. ANESTHETIC NOT SPECIFIED.
  4. NAPROXEN [Concomitant]
     Active Substance: NAPROXEN
     Indication: Product used for unknown indication
     Dosage: NO INFORMATION ON DOSAGE OF DERMABOND (2-OCTYL CYANOACRYLATE) PROVIDED.
  5. DERMABOND [Concomitant]
     Active Substance: OCRYLATE
     Indication: Product used for unknown indication
     Dosage: NO INFORMATION ON DOSAGE OF DERMABOND (2-OCTYL CYANOACRYLATE) PROVIDED.

REACTIONS (4)
  - Therapeutic response shortened [Recovering/Resolving]
  - Pruritus [Recovering/Resolving]
  - Rash [Recovering/Resolving]
  - Erythema [Recovering/Resolving]
